FAERS Safety Report 4874128-6 (Version None)
Quarter: 2006Q1

REPORT INFORMATION
  Report Type: 
  Country: None (occurrence: None)
  Receive Date: 20060106
  Receipt Date: 20051230
  Transmission Date: 20060701
  Serious: Yes (Hospitalization)
  Sender: FDA-Public Use
  Company Number: US-JNJFOC-20060100561

PATIENT
  Sex: Male
  Weight: 64.86 kg

DRUGS (15)
  1. DURAGESIC-100 [Suspect]
     Route: 062
  2. ASPIRIN [Concomitant]
     Route: 048
  3. PLAVIX [Concomitant]
     Route: 048
  4. PEPCID [Concomitant]
     Route: 048
  5. ZOCOR [Concomitant]
     Route: 048
  6. DILANTIN [Concomitant]
     Dosage: EVENING (PM) DOSAGE
     Route: 048
  7. DILANTIN [Concomitant]
     Indication: EPILEPSY
     Dosage: MORNING (AM) DOSAGE
     Route: 048
  8. VALIUM [Concomitant]
     Route: 048
  9. OXYIR [Concomitant]
     Indication: PAIN
     Route: 048
  10. PROPAFENONE HCL [Concomitant]
     Route: 048
  11. PROPAFENONE HCL [Concomitant]
     Indication: ATRIAL FIBRILLATION
     Route: 048
  12. COLACE [Concomitant]
     Route: 048
  13. NITROGLYCERIN [Concomitant]
     Indication: CHEST PAIN
     Dosage: COMMENT: ONE EVERY FIVE HOURS AS NEEDED, THREE TABLETS MAXIMUM.
     Route: 060
  14. AMBIEN [Concomitant]
     Indication: INSOMNIA
     Route: 048
  15. METOPROLOL [Concomitant]
     Route: 048

REACTIONS (4)
  - ARRHYTHMIA [None]
  - NAUSEA [None]
  - OPEN WOUND [None]
  - VOMITING [None]
